FAERS Safety Report 6595537-3 (Version None)
Quarter: 2010Q1

REPORT INFORMATION
  Report Type: 
  Country: None (occurrence: None)
  Receive Date: 20100222
  Receipt Date: 20100222
  Transmission Date: 20100710
  Serious: Yes (Other)
  Sender: FDA-Public Use
  Company Number: None

PATIENT
  Sex: Female
  Weight: 51.2565 kg

DRUGS (3)
  1. DOXYCYCLINE [Suspect]
     Indication: SINUSITIS
     Dosage: 1 TAB EV. 12HRS  W LIQUID
     Dates: start: 20100125
  2. DOXYCYCLINE [Suspect]
     Indication: SINUSITIS
     Dosage: 1 TAB EV. 12HRS  W LIQUID
     Dates: start: 20100126
  3. DOXYCYCLINE [Suspect]
     Indication: SINUSITIS
     Dosage: 1 TAB EV. 12HRS  W LIQUID
     Dates: start: 20100127

REACTIONS (3)
  - HYPERSENSITIVITY [None]
  - PRURITUS [None]
  - THROAT IRRITATION [None]
